FAERS Safety Report 16761042 (Version 2)
Quarter: 2019Q3

REPORT INFORMATION
  Report Type: Spontaneous
  Country: CA (occurrence: CA)
  Receive Date: 20190830
  Receipt Date: 20190830
  Transmission Date: 20191005
  Serious: Yes (Other)
  Sender: FDA-Public Use
  Company Number: CA-SAOL THERAPEUTICS-2017SAO03358

PATIENT
  Age: 31 Year
  Sex: Female

DRUGS (1)
  1. WINRHO SDF [Suspect]
     Active Substance: HUMAN RHO(D) IMMUNE GLOBULIN
     Indication: PROPHYLAXIS AGAINST RH ISOIMMUNISATION
     Dosage: 300 ?G; VOLUME 1.3, FRACTION 4/4
     Route: 042
     Dates: start: 20170206, end: 20170206

REACTIONS (3)
  - Hypersensitivity [Recovered/Resolved]
  - Neurogenic shock [Recovered/Resolved]
  - Exposure during pregnancy [Recovered/Resolved]

NARRATIVE: CASE EVENT DATE: 20170206
